FAERS Safety Report 6704245-7 (Version None)
Quarter: 2010Q2

REPORT INFORMATION
  Report Type: 
  Country: None (occurrence: None)
  Receive Date: 20100430
  Receipt Date: 20100319
  Transmission Date: 20101027
  Serious: No
  Sender: FDA-Public Use
  Company Number: US-TYCO HEALTHCARE/MALLINCKRODT-T201000883

PATIENT
  Sex: Female
  Weight: 59.864 kg

DRUGS (4)
  1. ACETAMINOPHEN AND HYDROCODONE BITARTRATE [Suspect]
     Indication: PAIN
     Dosage: 1 TABLET, QD
     Route: 048
     Dates: start: 20100217, end: 20100318
  2. ESTRADIOL [Concomitant]
     Indication: POSTMENOPAUSE
     Dosage: 1 MG, UNK
  3. LEVOTHROID [Concomitant]
     Indication: HYPOTHYROIDISM
     Dosage: 1 MEC, UNK
  4. VITAMIN B-12 [Concomitant]
     Indication: VITAMIN B12 DEFICIENCY
     Dosage: EVERY 2 WEEKS
     Route: 030

REACTIONS (2)
  - CONSTIPATION [None]
  - INSOMNIA [None]
